FAERS Safety Report 7046164-5 (Version None)
Quarter: 2010Q4

REPORT INFORMATION
  Report Type: 
  Country: None (occurrence: None)
  Receive Date: 20101013
  Receipt Date: 20101013
  Transmission Date: 20110411
  Serious: Yes (Hospitalization)
  Sender: FDA-Public Use
  Company Number: None

PATIENT
  Sex: Female
  Weight: 71.2 kg

DRUGS (2)
  1. CARBOPLATIN [Suspect]
     Dosage: 505 MG
     Dates: end: 20101006
  2. ETOPOSIDE [Suspect]
     Dosage: 516 MG
     Dates: end: 20101008

REACTIONS (4)
  - DIZZINESS [None]
  - HEADACHE [None]
  - NAUSEA [None]
  - RESPIRATORY DISTRESS [None]
